FAERS Safety Report 10144976 (Version 3)
Quarter: 2014Q2

REPORT INFORMATION
  Report Type: Spontaneous
  Country: US (occurrence: US)
  Receive Date: 20140430
  Receipt Date: 20140604
  Transmission Date: 20141212
  Serious: Yes (Hospitalization, Other)
  Sender: FDA-Public Use
  Company Number: US-AMGEN-USASP2014030470

PATIENT
  Age: 88 Year
  Sex: Female

DRUGS (1)
  1. PROLIA [Suspect]
     Indication: OSTEOPOROSIS POSTMENOPAUSAL
     Dosage: UNK
     Route: 065
     Dates: start: 2012

REACTIONS (33)
  - Blood test abnormal [Unknown]
  - Gastric ulcer [Unknown]
  - Aphagia [Unknown]
  - Mastoiditis [Unknown]
  - Pulmonary congestion [Unknown]
  - Urinary tract infection [Unknown]
  - Tooth extraction [Unknown]
  - Oral pain [Not Recovered/Not Resolved]
  - Stomatitis [Unknown]
  - Bone swelling [Not Recovered/Not Resolved]
  - Rash macular [Unknown]
  - Pain in jaw [Not Recovered/Not Resolved]
  - Mouth swelling [Unknown]
  - Bone density decreased [Unknown]
  - Temporomandibular joint syndrome [Unknown]
  - Impaired healing [Unknown]
  - Mouth ulceration [Unknown]
  - Tooth fracture [Unknown]
  - Trismus [Unknown]
  - Oral discomfort [Unknown]
  - Dyspnoea [Unknown]
  - Throat tightness [Unknown]
  - Lip swelling [Unknown]
  - Swollen tongue [Unknown]
  - Gait disturbance [Unknown]
  - Oral disorder [Unknown]
  - Herpes zoster [Unknown]
  - Pruritus [Unknown]
  - Urticaria [Unknown]
  - Swelling face [Unknown]
  - Rash [Unknown]
  - Drug ineffective [Unknown]
  - Drug hypersensitivity [Unknown]
